FAERS Safety Report 4564331-7 (Version None)
Quarter: 2005Q1

REPORT INFORMATION
  Report Type: 
  Country: None (occurrence: None)
  Receive Date: 20050126
  Receipt Date: 20050110
  Transmission Date: 20050727
  Serious: Yes (Hospitalization, Other)
  Sender: FDA-Public Use
  Company Number: DE_041214963

PATIENT
  Age: 65 Year
  Sex: Male

DRUGS (2)
  1. GEMZAR [Suspect]
     Indication: URETERIC CANCER
     Dosage: 1000 MG/M2
     Dates: start: 20041007, end: 20041021
  2. CISPLATIN [Concomitant]

REACTIONS (13)
  - ATELECTASIS [None]
  - DYSPNOEA [None]
  - HAEMATURIA [None]
  - INTERSTITIAL LUNG DISEASE [None]
  - LUNG INFILTRATION [None]
  - LYMPHADENOPATHY MEDIASTINAL [None]
  - PANCYTOPENIA [None]
  - PLEURAL EFFUSION [None]
  - PNEUMONIA [None]
  - PNEUMONITIS [None]
  - PRODUCTIVE COUGH [None]
  - PULMONARY FIBROSIS [None]
  - VENOUS OCCLUSION [None]
